FAERS Safety Report 18150164 (Version 1)
Quarter: 2020Q3

REPORT INFORMATION
  Report Type: Spontaneous
  Country: CA (occurrence: CA)
  Receive Date: 20200814
  Receipt Date: 20200814
  Transmission Date: 20201103
  Serious: Yes (Other)
  Sender: FDA-Public Use
  Company Number: CA-PFIZER INC-2020309120

PATIENT
  Age: 41 Year
  Sex: Male

DRUGS (3)
  1. USTEKINUMAB [Suspect]
     Active Substance: USTEKINUMAB
     Indication: CROHN^S DISEASE
     Dosage: UNK
  2. CIPROFLOXACIN. [Concomitant]
     Active Substance: CIPROFLOXACIN
     Indication: ANAL ULCER
     Dosage: UNK
  3. METRONIDAZOLE. [Suspect]
     Active Substance: METRONIDAZOLE
     Indication: INFECTED SKIN ULCER
     Dosage: UNK

REACTIONS (8)
  - Peripheral sensory neuropathy [Recovered/Resolved]
  - Neurotoxicity [Recovered/Resolved with Sequelae]
  - Central nervous system lesion [Not Recovered/Not Resolved]
  - Parkinsonism [Recovered/Resolved]
  - Product use issue [Unknown]
  - Toxic encephalopathy [Recovered/Resolved with Sequelae]
  - Ataxia [Recovered/Resolved]
  - Off label use [Unknown]
